FAERS Safety Report 13321253 (Version 9)
Quarter: 2017Q3

REPORT INFORMATION
  Report Type: Spontaneous
  Country: US (occurrence: US)
  Receive Date: 20170309
  Receipt Date: 20170817
  Transmission Date: 20171127
  Serious: Yes (Congenital Anomaly, Other)
  Sender: FDA-Public Use
  Company Number: PHEH2017US006857

PATIENT
  Sex: Male

DRUGS (2)
  1. ONDANSETRONE DR. REDDY^S [Suspect]
     Active Substance: ONDANSETRON HYDROCHLORIDE
     Indication: FOETAL EXPOSURE DURING PREGNANCY
     Dosage: MOTHER^S DOSE: 4 MG, UNK
     Route: 064
  2. ZOFRAN [Suspect]
     Active Substance: ONDANSETRON HYDROCHLORIDE
     Indication: FOETAL EXPOSURE DURING PREGNANCY
     Route: 064

REACTIONS (33)
  - Hypernatraemia [Unknown]
  - Congenital hydronephrosis [Unknown]
  - Cardiomegaly [Unknown]
  - Abscess [Unknown]
  - Renal disorder [Unknown]
  - Rash [Unknown]
  - Heart disease congenital [Unknown]
  - Premature baby [Unknown]
  - Left ventricular hypertrophy [Unknown]
  - Respiratory distress [Unknown]
  - Speech disorder [Unknown]
  - Impetigo [Unknown]
  - Cardiac murmur [Unknown]
  - Acarodermatitis [Unknown]
  - Foetal exposure during pregnancy [Unknown]
  - Transient tachypnoea of the newborn [Unknown]
  - Hypoperfusion [Unknown]
  - Pain [Unknown]
  - Hypermetropia [Unknown]
  - Anxiety [Unknown]
  - Pneumonia [Unknown]
  - Dental caries [Unknown]
  - Conjunctivitis [Unknown]
  - Hyperphosphataemia [Unknown]
  - Injury [Unknown]
  - Pollakiuria [Unknown]
  - Vision blurred [Unknown]
  - Blepharitis [Unknown]
  - Ventricular septal defect [Recovered/Resolved]
  - Cellulitis [Unknown]
  - Emotional distress [Unknown]
  - Polydipsia [Unknown]
  - Urinary incontinence [Unknown]

NARRATIVE: CASE EVENT DATE: 20101205
